FAERS Safety Report 6717893-5 (Version None)
Quarter: 2010Q2

REPORT INFORMATION
  Report Type: 
  Country: None (occurrence: None)
  Receive Date: 20100504
  Receipt Date: 20100423
  Transmission Date: 20101027
  Serious: Yes (Hospitalization)
  Sender: FDA-Public Use
  Company Number: 010753

PATIENT
  Sex: Female
  Weight: 60 kg

DRUGS (6)
  1. LACOSAMIDE [Suspect]
     Indication: CONVULSION
     Dosage: (100 MG BID ORAL) ; (50 MG BID ORAL)
     Route: 048
     Dates: start: 20100101, end: 20100401
  2. LACOSAMIDE [Suspect]
     Indication: CONVULSION
     Dosage: (100 MG BID ORAL) ; (50 MG BID ORAL)
     Route: 048
     Dates: start: 20100101, end: 20100418
  3. KEPPRA [Concomitant]
  4. CARBAMAZEPINE [Concomitant]
  5. CYMBALTA [Concomitant]
  6. AMITRIPTLINE HYDROCHLORIDE TAB [Concomitant]

REACTIONS (2)
  - ACUTE PSYCHOSIS [None]
  - ANTICONVULSANT DRUG LEVEL ABOVE THERAPEUTIC [None]
